FAERS Safety Report 4932792-7 (Version None)
Quarter: 2006Q1

REPORT INFORMATION
  Report Type: 
  Country: None (occurrence: None)
  Receive Date: 20060302
  Receipt Date: 20060302
  Transmission Date: 20060701
  Serious: Yes (Disabling)
  Sender: FDA-Public Use
  Company Number: None

PATIENT
  Age: 45 Year
  Sex: Male
  Weight: 150 kg

DRUGS (2)
  1. CLOZAPINE [Suspect]
  2. HALDOL [Suspect]

REACTIONS (4)
  - COMA [None]
  - LOSS OF CONSCIOUSNESS [None]
  - PYREXIA [None]
  - QUADRIPLEGIA [None]
